FAERS Safety Report 10344825 (Version 1)
Quarter: 2014Q3

REPORT INFORMATION
  Report Type: Spontaneous
  Country: US (occurrence: US)
  Receive Date: 20140728
  Receipt Date: 20140728
  Transmission Date: 20150326
  Serious: No
  Sender: FDA-Public Use
  Company Number: US-BAYER-2014-108679

PATIENT
  Sex: Male

DRUGS (1)
  1. ALEVE [Suspect]
     Active Substance: NAPROXEN SODIUM
     Indication: MIGRAINE
     Dosage: 3 DF, QD
     Route: 048
     Dates: start: 201406, end: 20140715

REACTIONS (3)
  - Intentional product misuse [None]
  - Inappropriate schedule of drug administration [None]
  - Incorrect drug administration duration [None]

NARRATIVE: CASE EVENT DATE: 201406
